FAERS Safety Report 8946956 (Version 2)
Quarter: 2012Q4

REPORT INFORMATION
  Report Type: 
  Country: ES (occurrence: ES)
  Receive Date: 20121205
  Receipt Date: 20121218
  Transmission Date: 20130627
  Serious: Yes (Death, Hospitalization, Other)
  Sender: FDA-Public Use
  Company Number: ES-ELI_LILLY_AND_COMPANY-ES201212000620

PATIENT
  Sex: Female

DRUGS (1)
  1. FORSTEO [Suspect]
     Dosage: UNK
     Dates: start: 20110427

REACTIONS (3)
  - Death [Fatal]
  - Infection [Unknown]
  - Surgery [Unknown]
